FAERS Safety Report 8243465-X (Version None)
Quarter: 2012Q1

REPORT INFORMATION
  Report Type: 
  Country: None (occurrence: None)
  Receive Date: 20120315
  Receipt Date: 20100218
  Transmission Date: 20120608
  Serious: No
  Sender: FDA-Public Use
  Company Number: PHHY2010US09673

PATIENT

DRUGS (1)
  1. FANAPT [Suspect]
     Dosage: 4 MG, BID, 6 MG, BID

REACTIONS (1)
  - OCULAR HYPERAEMIA [None]
